FAERS Safety Report 4680865-9 (Version None)
Quarter: 2005Q2

REPORT INFORMATION
  Report Type: 
  Country: None (occurrence: None)
  Receive Date: 20050531
  Receipt Date: 20050531
  Transmission Date: 20051028
  Serious: Yes (Other)
  Sender: FDA-Public Use
  Company Number: None

PATIENT
  Age: 40 Year
  Sex: Female
  Weight: 90.7194 kg

DRUGS (1)
  1. GLUCOPHAGE XR [Suspect]
     Indication: METABOLIC SYNDROME
     Dosage: ONE TWO HS MEAL PO
     Route: 048
     Dates: start: 20041101, end: 20050401

REACTIONS (1)
  - CROSS SENSITIVITY REACTION [None]
